FAERS Safety Report 10429252 (Version 2)
Quarter: 2014Q3

REPORT INFORMATION
  Report Type: Spontaneous
  Country: CN (occurrence: CN)
  Receive Date: 20140904
  Receipt Date: 20140909
  Transmission Date: 20150326
  Serious: Yes (Other)
  Sender: FDA-Public Use
  Company Number: CN-009507513-1408CHN016158

PATIENT
  Age: 76 Year
  Sex: Male
  Weight: 65 kg

DRUGS (4)
  1. CLARITYNE [Suspect]
     Active Substance: LORATADINE
     Indication: ECZEMA
     Dosage: 10 MG, QD
     Route: 048
     Dates: start: 20140218, end: 20140218
  2. CHLORPHENIRAMINE MALEATE. [Suspect]
     Active Substance: CHLORPHENIRAMINE MALEATE
     Indication: ECZEMA
     Dosage: 10 MG, QD
     Route: 030
     Dates: start: 20140218, end: 20140218
  3. GLYCYRRHIZIN [Suspect]
     Active Substance: GLYCYRRHIZIN
     Indication: ECZEMA
     Dosage: 2 PILL, TID
     Route: 048
     Dates: start: 20140218, end: 20140218
  4. BCG VACCINE USP [Suspect]
     Active Substance: BCG VACCINE\BACILLUS CALMETTE-GUERIN SUBSTRAIN TICE LIVE ANTIGEN
     Indication: PROPHYLAXIS
     Route: 030
     Dates: start: 20140218, end: 20140218

REACTIONS (1)
  - Anaphylactoid reaction [Recovered/Resolved]

NARRATIVE: CASE EVENT DATE: 20140218
